FAERS Safety Report 4869667-8 (Version None)
Quarter: 2005Q4

REPORT INFORMATION
  Report Type: 
  Country: None (occurrence: None)
  Receive Date: 20051223
  Receipt Date: 20051219
  Transmission Date: 20060501
  Serious: Yes (Death)
  Sender: FDA-Public Use
  Company Number: DEWYE245819DEC05

PATIENT
  Age: 27 Year
  Sex: Female

DRUGS (3)
  1. VENLAFAXINE HCL [Suspect]
     Indication: ALCOHOLISM
     Dosage: 18 TABLETS 37.5 MG EACH (OVERDOSE AMOUNT 675 MG), ORAL
     Route: 048
     Dates: start: 20051201, end: 20051201
  2. LAMICTAL [Concomitant]
  3. TOPAMAX [Concomitant]

REACTIONS (2)
  - OVERDOSE [None]
  - RESPIRATORY ARREST [None]
